FAERS Safety Report 4283568-8 (Version None)
Quarter: 2004Q1

REPORT INFORMATION
  Report Type: 
  Country: None (occurrence: None)
  Receive Date: 20040202
  Receipt Date: 20040121
  Transmission Date: 20041129
  Serious: Yes (Death)
  Sender: FDA-Public Use
  Company Number: US-GLAXOSMITHKLINE-A0495513A

PATIENT
  Sex: Female

DRUGS (9)
  1. ZANTAC [Suspect]
     Dosage: 300MG UNKNOWN
     Route: 048
  2. K-DUR 10 [Concomitant]
  3. BUMEX [Concomitant]
  4. LESCOL [Concomitant]
  5. DILACOR XR [Concomitant]
  6. PLETAL [Concomitant]
  7. VICOPROFEN [Concomitant]
  8. DIAZIDE [Concomitant]
  9. UNSPECIFIED MEDICATION [Concomitant]

REACTIONS (2)
  - CEREBROVASCULAR ACCIDENT [None]
  - DEATH [None]
